FAERS Safety Report 9223616 (Version 2)
Quarter: 2013Q2

REPORT INFORMATION
  Report Type: Spontaneous
  Country: FR (occurrence: FR)
  Receive Date: 20130410
  Receipt Date: 20130524
  Transmission Date: 20140414
  Serious: Yes (Hospitalization)
  Sender: FDA-Public Use
  Company Number: FR-GLAXOSMITHKLINE-B0879953A

PATIENT
  Age: 52 Year
  Sex: Male

DRUGS (7)
  1. ZINNAT [Suspect]
     Indication: TRACHEITIS
     Dosage: 250MG TWICE PER DAY
     Route: 048
     Dates: start: 20130225, end: 20130303
  2. AUGMENTIN (ORAL) [Suspect]
     Indication: TOOTH ABSCESS
     Dosage: 2G PER DAY
     Route: 048
     Dates: start: 20130123, end: 20130129
  3. AUGMENTIN (ORAL) [Suspect]
     Indication: TRACHEITIS
     Dosage: 2G PER DAY
     Route: 048
     Dates: start: 20130207, end: 20130213
  4. IBUPROFEN [Suspect]
     Indication: TOOTH ABSCESS
     Route: 048
     Dates: start: 20130123
  5. OMEPRAZOLE [Concomitant]
     Indication: PRODUCT USED FOR UNKNOWN INDICATION
     Route: 048
     Dates: end: 20130315
  6. COAPROVEL [Concomitant]
     Indication: PRODUCT USED FOR UNKNOWN INDICATION
     Route: 048
     Dates: end: 20130315
  7. PARACETAMOL [Concomitant]
     Indication: TOOTHACHE
     Route: 048

REACTIONS (7)
  - Hepatitis acute [Recovering/Resolving]
  - Eosinophilia [Recovering/Resolving]
  - Jaundice [Recovering/Resolving]
  - Faeces discoloured [Unknown]
  - Chromaturia [Unknown]
  - Vitamin B12 increased [Unknown]
  - Hypogammaglobulinaemia [Unknown]
